FAERS Safety Report 11397278 (Version 1)
Quarter: 2015Q3

REPORT INFORMATION
  Report Type: Spontaneous
  Country: US (occurrence: US)
  Receive Date: 20150819
  Receipt Date: 20150819
  Transmission Date: 20151125
  Serious: No
  Sender: FDA-Public Use
  Company Number: US-PFIZER INC-2015275437

PATIENT
  Age: 70 Year
  Sex: Female
  Weight: 88 kg

DRUGS (3)
  1. DAYPRO [Suspect]
     Active Substance: OXAPROZIN
     Dosage: 300 MG, 1X/DAY
  2. MS CONTIN [Concomitant]
     Active Substance: MORPHINE SULFATE
     Indication: PAIN
     Dosage: 15 MG, 2X/DAY
     Dates: start: 20150707
  3. DAYPRO [Suspect]
     Active Substance: OXAPROZIN
     Indication: ANTIINFLAMMATORY THERAPY
     Dosage: 600 MG, 2X/DAY
     Route: 048
     Dates: start: 20150728

REACTIONS (1)
  - Diarrhoea [Recovering/Resolving]
